FAERS Safety Report 25583538 (Version 1)
Quarter: 2025Q3

REPORT INFORMATION
  Report Type: Spontaneous
  Country: EU (occurrence: EU)
  Receive Date: 20250721
  Receipt Date: 20250721
  Transmission Date: 20251021
  Serious: Yes (Life-Threatening, Hospitalization, Other)
  Sender: NOVO NORDISK
  Company Number: None

PATIENT
  Age: 16 Year
  Sex: Female

DRUGS (1)
  1. WEGOVY [Suspect]
     Active Substance: SEMAGLUTIDE
     Indication: Obesity
     Dosage: 1 MG, QW
     Route: 058
     Dates: start: 20231106, end: 20240201

REACTIONS (3)
  - Suicidal ideation [Not Recovered/Not Resolved]
  - Abnormal loss of weight [Unknown]
  - Hypophagia [Unknown]

NARRATIVE: CASE EVENT DATE: 20231201
